FAERS Safety Report 6935275-8 (Version None)
Quarter: 2010Q3

REPORT INFORMATION
  Report Type: 
  Country: None (occurrence: None)
  Receive Date: 20100822
  Receipt Date: 20100714
  Transmission Date: 20110219
  Serious: No
  Sender: FDA-Public Use
  Company Number: US-ALLERGAN-1009207US

PATIENT
  Age: 83 Year
  Sex: Male

DRUGS (2)
  1. COMBIGAN [Suspect]
     Indication: GLAUCOMA
     Dosage: UNK
     Dates: end: 20100712
  2. COMBIGAN [Suspect]
     Dosage: UNK
     Dates: end: 20100709

REACTIONS (3)
  - BLEPHAROPACHYNSIS [None]
  - EYE PRURITUS [None]
  - MASS [None]
